FAERS Safety Report 6168632-0 (Version None)
Quarter: 2009Q2

REPORT INFORMATION
  Report Type: 
  Country: None (occurrence: None)
  Receive Date: 20090423
  Receipt Date: 20090415
  Transmission Date: 20091009
  Serious: Yes (Hospitalization)
  Sender: FDA-Public Use
  Company Number: 20084819

PATIENT
  Age: 55 Year
  Sex: Male
  Weight: 44.6 kg

DRUGS (10)
  1. BACLOFEN [Suspect]
     Indication: MUSCLE SPASTICITY
     Dosage: 153 MCG, DAILY, INTRATHECAL
     Route: 037
     Dates: start: 20060823
  2. CELESTAMINE [Concomitant]
  3. THEOLONG [Concomitant]
  4. SINGULAIR [Concomitant]
  5. MADOPAR [Concomitant]
  6. MUCODYNE [Concomitant]
  7. LAMISIL [Concomitant]
  8. CERCINE [Concomitant]
  9. ARTANE [Concomitant]
  10. GASTER-D [Concomitant]

REACTIONS (10)
  - AFFECT LABILITY [None]
  - ALANINE AMINOTRANSFERASE INCREASED [None]
  - ASPARTATE AMINOTRANSFERASE INCREASED [None]
  - BLOOD LACTATE DEHYDROGENASE INCREASED [None]
  - DRUG EFFECT DECREASED [None]
  - GAMMA-GLUTAMYLTRANSFERASE INCREASED [None]
  - HEPATIC FUNCTION ABNORMAL [None]
  - LEUCINE AMINOPEPTIDASE DECREASED [None]
  - PYREXIA [None]
  - VIRAL INFECTION [None]
